FAERS Safety Report 4592623-4 (Version None)
Quarter: 2005Q1

REPORT INFORMATION
  Report Type: 
  Country: None (occurrence: None)
  Receive Date: 20050222
  Receipt Date: 20050128
  Transmission Date: 20050727
  Serious: Yes (Hospitalization)
  Sender: FDA-Public Use
  Company Number: RS004954-BR

PATIENT
  Age: 46 Year
  Sex: Male
  Weight: 112 kg

DRUGS (2)
  1. RABEPRAZOLE SODIUM [Suspect]
     Indication: GASTROOESOPHAGEAL REFLUX DISEASE
     Dosage: 20 MG, 1 IN 1 D, ORAL
     Route: 048
     Dates: start: 20030501
  2. RITMONORM (PROPAFENONE) [Concomitant]

REACTIONS (1)
  - ARRHYTHMIA [None]
